FAERS Safety Report 14372577 (Version 4)
Quarter: 2018Q1

REPORT INFORMATION
  Report Type: Spontaneous
  Country: US (occurrence: US)
  Receive Date: 20180110
  Receipt Date: 20180126
  Transmission Date: 20180509
  Serious: No
  Sender: FDA-Public Use
  Company Number: US-GLAXOSMITHKLINE-US2018003293

PATIENT
  Age: 87 Year
  Sex: Female

DRUGS (7)
  1. IRON [Concomitant]
     Active Substance: IRON
  2. APRISO [Concomitant]
     Active Substance: MESALAMINE
  3. PRAVASTATIN. [Concomitant]
     Active Substance: PRAVASTATIN
  4. NEXIUM [Concomitant]
     Active Substance: ESOMEPRAZOLE MAGNESIUM
  5. CALCIUM [Concomitant]
     Active Substance: CALCIUM
  6. GLUCOSAMINE [Concomitant]
     Active Substance: GLUCOSAMINE
  7. ADVAIR DISKUS [Suspect]
     Active Substance: FLUTICASONE PROPIONATE\SALMETEROL XINAFOATE
     Indication: WHEEZING
     Dosage: 1 PUFF(S), BID
     Dates: start: 201711, end: 20180109

REACTIONS (5)
  - Oral candidiasis [Unknown]
  - Dysgeusia [Not Recovered/Not Resolved]
  - Oral discomfort [Unknown]
  - Dysphonia [Unknown]
  - Candida infection [Unknown]

NARRATIVE: CASE EVENT DATE: 20180109
